FAERS Safety Report 8951336 (Version 1)
Quarter: 2012Q4

REPORT INFORMATION
  Report Type: Spontaneous
  Country: DE (occurrence: None)
  Receive Date: 20121118
  Receipt Date: 20121118
  Transmission Date: 20130627
  Serious: Yes (Hospitalization)
  Sender: FDA-Public Use
  Company Number: DE-DEXPHARM-20121568

PATIENT
  Age: 59 Year
  Sex: Female

DRUGS (3)
  1. OMEPRAZOLE [Suspect]
     Indication: GASTRIC RESECTION
     Route: 048
     Dates: start: 2005, end: 2006
  2. PANTOPRAZOLE [Suspect]
     Route: 048
     Dates: start: 2005, end: 2006
  3. NEXIUM [Suspect]
     Route: 048
     Dates: start: 2006

REACTIONS (6)
  - Dizziness [None]
  - Visual acuity reduced [None]
  - Visual impairment [None]
  - Asthenia [None]
  - Vision blurred [None]
  - Abnormal sensation in eye [None]
